FAERS Safety Report 17590370 (Version 1)
Quarter: 2020Q1

REPORT INFORMATION
  Report Type: Spontaneous
  Country: US (occurrence: US)
  Receive Date: 20200325
  Receipt Date: 20200325
  Transmission Date: 20200409
  Serious: No
  Sender: FDA-Public Use
  Company Number: None

PATIENT
  Age: 59 Year
  Sex: Male
  Weight: 85 kg

DRUGS (2)
  1. PREGABALIN (PREGABALIN 50MG CAP ORAL) [Suspect]
     Active Substance: PREGABALIN
     Indication: CANCER PAIN
     Route: 048
     Dates: start: 20181227, end: 20190102
  2. PREGABALIN (PREGABALIN 50MG CAP ORAL) [Suspect]
     Active Substance: PREGABALIN
     Indication: GENERALISED ANXIETY DISORDER
     Route: 048
     Dates: start: 20181227, end: 20190102

REACTIONS (4)
  - Depression [None]
  - Suicide attempt [None]
  - Intentional product misuse [None]
  - Mood altered [None]

NARRATIVE: CASE EVENT DATE: 20190102
